FAERS Safety Report 25644210 (Version 1)
Quarter: 2025Q3

REPORT INFORMATION
  Report Type: Spontaneous
  Country: US (occurrence: None)
  Receive Date: 20250803
  Receipt Date: 20250803
  Transmission Date: 20251021
  Serious: Yes (Life-Threatening, Hospitalization)
  Sender: FDA-CTU
  Company Number: None

PATIENT
  Age: 28 Year
  Sex: Female
  Weight: 65 kg

DRUGS (6)
  1. DOMPERIDONE [Suspect]
     Active Substance: DOMPERIDONE
     Indication: Impaired gastric emptying
     Dosage: FREQUENCY : 3 TIMES A DAY;?
     Route: 048
  2. DICYCLOMINE [Suspect]
     Active Substance: DICYCLOMINE HYDROCHLORIDE
  3. DULOXETINE [Suspect]
     Active Substance: DULOXETINE
  4. ETONOGESTREL [Suspect]
     Active Substance: ETONOGESTREL
  5. NEBIVOLOL [Suspect]
     Active Substance: NEBIVOLOL
  6. ONDANSETRON [Suspect]
     Active Substance: ONDANSETRON

REACTIONS (12)
  - Headache [None]
  - Cranial nerve palsies multiple [None]
  - Mental status changes [None]
  - Asthenia [None]
  - Decreased activity [None]
  - Cognitive disorder [None]
  - Pneumonia aspiration [None]
  - Wernicke^s encephalopathy [None]
  - Blood folate decreased [None]
  - Platelet count decreased [None]
  - Haematemesis [None]
  - Anaemia [None]

NARRATIVE: CASE EVENT DATE: 20250720
